FAERS Safety Report 22000186 (Version 6)
Quarter: 2023Q2

REPORT INFORMATION
  Report Type: Spontaneous
  Country: CA (occurrence: CA)
  Receive Date: 20230216
  Receipt Date: 20230427
  Transmission Date: 20230722
  Serious: Yes (Hospitalization, Other)
  Sender: FDA-Public Use
  Company Number: CA-PFIZER INC-202300061997

PATIENT
  Age: 59 Year
  Sex: Female

DRUGS (4)
  1. RUXIENCE [Suspect]
     Active Substance: RITUXIMAB-PVVR
     Indication: Systemic lupus erythematosus
     Dosage: 1 DF, DOSAGE NOT AVAILABLE - RECEIVED TWO DOSES IN HOSPITAL (UNKNOWN DATE)
     Route: 042
  2. RUXIENCE [Suspect]
     Active Substance: RITUXIMAB-PVVR
     Dosage: 1 DF, DOSAGE NOT AVAILABLE - RECEIVED TWO DOSES IN HOSPITAL (UNKNOWN DATE)
     Route: 042
  3. RUXIENCE [Suspect]
     Active Substance: RITUXIMAB-PVVR
     Dosage: 1 DF, DOSAGE NOT AVAILABLE - RECEIVED TWO DOSES IN HOSPITAL (UNKNOWN DATE)
     Route: 042
  4. RUXIENCE [Suspect]
     Active Substance: RITUXIMAB-PVVR
     Dosage: 1000 MG, DAY 1 AND DAY 15 - NOT YET STARTED
     Route: 042

REACTIONS (10)
  - Inflammation [Unknown]
  - Lung disorder [Unknown]
  - Neoplasm malignant [Unknown]
  - Drug effective for unapproved indication [Unknown]
  - Off label use [Unknown]
  - White blood cell count increased [Unknown]
  - Platelet count increased [Unknown]
  - Pleuritic pain [Unknown]
  - Bilirubin conjugated increased [Unknown]
  - Blood bilirubin increased [Unknown]
